FAERS Safety Report 5575099-X (Version None)
Quarter: 2007Q4

REPORT INFORMATION
  Report Type: 
  Country: None (occurrence: None)
  Receive Date: 20071130
  Receipt Date: 20070926
  Transmission Date: 20080405
  Serious: No
  Sender: FDA-Public Use
  Company Number: PHEH2007US12852

PATIENT
  Sex: Female

DRUGS (1)
  1. TEKTURNA [Suspect]
     Indication: HYPERTENSION
     Dosage: 150 MG QD UNK

REACTIONS (3)
  - BLOOD PRESSURE DECREASED [None]
  - FLATULENCE [None]
  - HEART RATE IRREGULAR [None]
